FAERS Safety Report 15489179 (Version 2)
Quarter: 2019Q1

REPORT INFORMATION
  Report Type: Spontaneous
  Country: US (occurrence: US)
  Receive Date: 20181011
  Receipt Date: 20190307
  Transmission Date: 20190417
  Serious: No
  Sender: FDA-Public Use
  Company Number: US-PFIZER INC-2018409324

PATIENT
  Age: 49 Year
  Sex: Male
  Weight: 143.3 kg

DRUGS (1)
  1. TACROLIMUS. [Suspect]
     Active Substance: TACROLIMUS
     Dosage: UNK

REACTIONS (2)
  - Accidental overdose [Unknown]
  - Malaise [Unknown]

NARRATIVE: CASE EVENT DATE: 2017
